APPROVED DRUG PRODUCT: PHENYLEPHRINE HYDROCHLORIDE AND PROMETHAZINE HYDROCHLORIDE
Active Ingredient: PHENYLEPHRINE HYDROCHLORIDE; PROMETHAZINE HYDROCHLORIDE
Strength: 5MG/5ML;6.25MG/5ML
Dosage Form/Route: SYRUP;ORAL
Application: A040654 | Product #001 | TE Code: AA
Applicant: GENUS LIFESCIENCES INC
Approved: Dec 7, 2006 | RLD: No | RS: Yes | Type: RX